FAERS Safety Report 6136898-9 (Version None)
Quarter: 2009Q1

REPORT INFORMATION
  Report Type: 
  Country: None (occurrence: None)
  Receive Date: 20090330
  Receipt Date: 20090319
  Transmission Date: 20090719
  Serious: Yes (Hospitalization, Other)
  Sender: FDA-Public Use
  Company Number: BR-AVENTIS-200911397GDDC

PATIENT
  Age: 44 Year
  Sex: Male
  Weight: 60 kg

DRUGS (14)
  1. LANTUS [Suspect]
     Route: 058
     Dates: start: 20010101
  2. OPTIPEN (INSULIN PUMP) [Suspect]
     Dates: start: 20010101
  3. AUTOPEN INSULIN INJECTION PEN [Suspect]
  4. HUMALOG [Concomitant]
     Dosage: DOSE: ACCORDING TO GLYCEMIA
     Route: 058
  5. VITAMIN E [Concomitant]
     Dosage: DOSE QUANTITY: 1
     Route: 048
  6. VITAMIN B NOS [Concomitant]
     Dosage: DOSE QUANTITY: 1
     Route: 048
  7. GABAPENTIN [Concomitant]
     Dosage: DOSE QUANTITY: 2
     Route: 048
  8. PROGRAF [Concomitant]
     Indication: IMMUNOSUPPRESSANT DRUG THERAPY
     Dosage: DOSE QUANTITY: 1
     Route: 048
  9. MYFORTIC [Concomitant]
     Indication: IMMUNOSUPPRESSANT DRUG THERAPY
     Dosage: DOSE QUANTITY: 1
     Route: 048
  10. PREDNISONE [Concomitant]
     Indication: IMMUNOSUPPRESSANT DRUG THERAPY
     Dosage: DOSE QUANTITY: 2
     Route: 048
  11. OMEPRAZOLE [Concomitant]
     Dosage: DOSE QUANTITY: 2
     Route: 048
  12. PROPRANOLOL [Concomitant]
     Indication: HYPERTENSION
     Dosage: DOSE QUANTITY: 2
     Route: 048
  13. BACTRIM [Concomitant]
     Dosage: DOSE QUANTITY: 1
     Route: 048
  14. FERROUS SULFATE TAB [Concomitant]
     Dosage: DOSE QUANTITY: 2
     Route: 048

REACTIONS (7)
  - ANAEMIA [None]
  - BLOOD GLUCOSE DECREASED [None]
  - BLOOD GLUCOSE FLUCTUATION [None]
  - BLOOD GLUCOSE INCREASED [None]
  - CONDITION AGGRAVATED [None]
  - PRODUCT QUALITY ISSUE [None]
  - RENAL FAILURE [None]
